FAERS Safety Report 10506974 (Version 1)
Quarter: 2014Q4

REPORT INFORMATION
  Report Type: Report from Study
  Country: CA (occurrence: CA)
  Receive Date: 20141009
  Receipt Date: 20141009
  Transmission Date: 20150528
  Serious: Yes (Hospitalization)
  Sender: FDA-Public Use
  Company Number: CA-JNJFOC-20141001531

PATIENT
  Age: 67 Year
  Sex: Male
  Weight: 77.11 kg

DRUGS (1)
  1. REMICADE [Suspect]
     Active Substance: INFLIXIMAB
     Indication: COLITIS ULCERATIVE
     Route: 042
     Dates: start: 201310, end: 20131104

REACTIONS (3)
  - Intestinal resection [Recovered/Resolved]
  - Drug ineffective [Unknown]
  - Enterostomy [Recovered/Resolved]

NARRATIVE: CASE EVENT DATE: 201401
